FAERS Safety Report 5343285-X (Version None)
Quarter: 2007Q2

REPORT INFORMATION
  Report Type: 
  Country: None (occurrence: None)
  Receive Date: 20070502
  Receipt Date: 20060913
  Transmission Date: 20071010
  Serious: Yes (Other)
  Sender: FDA-Public Use
  Company Number: PHEH2006US11726

PATIENT
  Age: 52 Year
  Sex: Female

DRUGS (1)
  1. LOTREL [Suspect]
     Indication: HYPERTENSION
     Dosage: 10/20 MG, QD, ORAL
     Route: 048
     Dates: start: 20060816, end: 20060913

REACTIONS (3)
  - ANGIOEDEMA [None]
  - SWELLING FACE [None]
  - URTICARIA [None]
